FAERS Safety Report 17367939 (Version 1)
Quarter: 2020Q1

REPORT INFORMATION
  Report Type: Spontaneous
  Country: US (occurrence: US)
  Receive Date: 20200118
  Receipt Date: 20200118
  Transmission Date: 20200409
  Serious: No
  Sender: FDA-Public Use
  Company Number: None

PATIENT
  Age: 77 Year
  Sex: Female
  Weight: 54 kg

DRUGS (1)
  1. LENALIDOMIDE (CC-50130) [Suspect]
     Active Substance: LENALIDOMIDE
     Dates: end: 20200101

REACTIONS (4)
  - Therapy cessation [None]
  - Back pain [None]
  - Blood pressure decreased [None]
  - Syncope [None]

NARRATIVE: CASE EVENT DATE: 20200102
